FAERS Safety Report 11099093 (Version 1)
Quarter: 2015Q2

REPORT INFORMATION
  Report Type: Spontaneous
  Country: BR (occurrence: BR)
  Receive Date: 20150508
  Receipt Date: 20150508
  Transmission Date: 20150821
  Serious: Yes (Hospitalization)
  Sender: FDA-Public Use
  Company Number: BR-ABBVIE-15K-020-1386836-00

PATIENT
  Sex: Female
  Weight: 59 kg

DRUGS (6)
  1. MELOXICAM. [Concomitant]
     Active Substance: MELOXICAM
     Indication: PRODUCT USED FOR UNKNOWN INDICATION
  2. METHOTREXATE [Suspect]
     Active Substance: METHOTREXATE
     Indication: PRODUCT USED FOR UNKNOWN INDICATION
     Route: 065
  3. HUMIRA [Suspect]
     Active Substance: ADALIMUMAB
     Indication: RHEUMATOID ARTHRITIS
     Route: 065
  4. SULFA [Suspect]
     Active Substance: UNSPECIFIED INGREDIENT
     Indication: PRODUCT USED FOR UNKNOWN INDICATION
     Route: 065
  5. TANDENE [Suspect]
     Active Substance: ACETAMINOPHEN\CAFFEINE\CARISOPRODOL\DICLOFENAC SODIUM
     Indication: INTERVERTEBRAL DISC PROTRUSION
     Route: 065
  6. NORIPURUM [Suspect]
     Active Substance: IRON POLYMALTOSE
     Indication: ANAEMIA
     Route: 065

REACTIONS (15)
  - Drug ineffective [Unknown]
  - Intervertebral disc protrusion [Unknown]
  - Benign breast neoplasm [Recovered/Resolved]
  - Pruritus [Recovering/Resolving]
  - Hypersensitivity [Unknown]
  - Rheumatoid arthritis [Not Recovered/Not Resolved]
  - Kidney infection [Recovered/Resolved]
  - Immunodeficiency [Recovering/Resolving]
  - Varicella zoster virus infection [Recovering/Resolving]
  - Pain [Recovering/Resolving]
  - Drug hypersensitivity [Unknown]
  - Anaemia [Recovered/Resolved]
  - Swelling [Unknown]
  - Pyrexia [Recovering/Resolving]
  - Rash pustular [Recovering/Resolving]

NARRATIVE: CASE EVENT DATE: 2014
